FAERS Safety Report 4265893-X (Version None)
Quarter: 2004Q1

REPORT INFORMATION
  Report Type: 
  Country: None (occurrence: None)
  Receive Date: 20040106
  Receipt Date: 20031020
  Transmission Date: 20041129
  Serious: Yes (Hospitalization, Other)
  Sender: FDA-Public Use
  Company Number: JP-JNJFOC-20031100032

PATIENT
  Age: 57 Year
  Sex: Male
  Weight: 67 kg

DRUGS (12)
  1. REMICADE [Suspect]
     Indication: RHEUMATOID ARTHRITIS
     Dosage: 201 MG, 1 IN 1 AS NECESSARY, INTRAVENOUS DRIP
     Route: 041
     Dates: start: 20030826, end: 20030826
  2. REMICADE [Suspect]
     Indication: RHEUMATOID ARTHRITIS
     Dosage: 201 MG, 1 IN 1 AS NECESSARY, INTRAVENOUS DRIP
     Route: 041
     Dates: start: 20030909, end: 20030909
  3. LORNOXICAM (LORNOXICAM) UNKNOWN [Concomitant]
  4. KOLANTYL (KOLANTYL) POWDER [Concomitant]
  5. MARZULENE S (MARZULENE S) POWDER [Concomitant]
  6. RHEUMATREX [Concomitant]
  7. PREDNISOLONE [Concomitant]
  8. RIMATIL (BUCILLAMINE) TABLETS [Concomitant]
  9. SULFASALAZINE [Concomitant]
  10. LORCAM (ALL OTHER THERAPEUTIC PRODUCTS) TABLETS [Concomitant]
  11. GASTER (FAMOTIDINE) TABLETS [Concomitant]
  12. ULCERMIN (SUCRALFATE) POWDER [Concomitant]

REACTIONS (9)
  - BLOOD CHOLESTEROL INCREASED [None]
  - C-REACTIVE PROTEIN INCREASED [None]
  - HAEMOGLOBIN DECREASED [None]
  - HEADACHE [None]
  - LUPUS-LIKE SYNDROME [None]
  - LYMPHOCYTE COUNT DECREASED [None]
  - MONOCYTE COUNT INCREASED [None]
  - PLATELET COUNT INCREASED [None]
  - WHITE BLOOD CELL COUNT INCREASED [None]
